FAERS Safety Report 14985817 (Version 2)
Quarter: 2018Q2

REPORT INFORMATION
  Report Type: Report from Study
  Country: ES (occurrence: ES)
  Receive Date: 20180607
  Receipt Date: 20180619
  Transmission Date: 20180711
  Serious: Yes (Other)
  Sender: FDA-Public Use
  Company Number: ES-PFIZER INC-2018227770

PATIENT

DRUGS (3)
  1. IRINOTECAN HCL [Suspect]
     Active Substance: IRINOTECAN HYDROCHLORIDE
     Indication: GLIOMA
     Dosage: 65 MG/M2, 1X/DAY (INITIAL DOSE NOT STATED)
  2. MANNITOL. [Concomitant]
     Active Substance: MANNITOL
     Indication: GLIOMA
     Dosage: 0.25 G/K MANNITOL PARALLEL WITH CISPLATIN)
  3. CISPLATIN. [Suspect]
     Active Substance: CISPLATIN
     Indication: GLIOMA
     Dosage: 30 MG/M2, WEEKLY

REACTIONS (1)
  - Tumour haemorrhage [Unknown]
